FAERS Safety Report 24292229 (Version 1)
Quarter: 2024Q3

REPORT INFORMATION
  Report Type: Spontaneous
  Country: US (occurrence: None)
  Receive Date: 20240906
  Receipt Date: 20240906
  Transmission Date: 20241017
  Serious: No
  Sender: DOMPE FARMACEUTICI
  Company Number: US-FARMAPROD-202308-202307-2062

PATIENT
  Age: 77 Year
  Sex: Male
  Weight: 68.04 kg

DRUGS (18)
  1. OXERVATE [Suspect]
     Active Substance: CENEGERMIN-BKBJ
     Indication: Neurotrophic keratopathy
     Route: 047
     Dates: start: 20230626, end: 20230822
  2. OXERVATE [Suspect]
     Active Substance: CENEGERMIN-BKBJ
     Route: 047
     Dates: start: 20231220
  3. PREDNISOLONE-NEPAFENAC [Concomitant]
  4. MIRAPEX [Concomitant]
     Active Substance: PRAMIPEXOLE DIHYDROCHLORIDE
  5. CARBIDOPA\LEVODOPA [Concomitant]
     Active Substance: CARBIDOPA\LEVODOPA
  6. GEMFIBROZIL [Concomitant]
     Active Substance: GEMFIBROZIL
  7. AVODART [Concomitant]
     Active Substance: DUTASTERIDE
  8. NEXIUM [Concomitant]
     Active Substance: ESOMEPRAZOLE MAGNESIUM
     Dosage: SUSPENSION FOR RECONSTITUTION,DELAYED RELEASE IN A PACKET
  9. AMANTADINE [Concomitant]
     Active Substance: AMANTADINE
  10. ASPIRIN [Concomitant]
     Active Substance: ASPIRIN
  11. ATORVASTATIN CALCIUM [Concomitant]
     Active Substance: ATORVASTATIN CALCIUM
  12. MELOXICAM [Concomitant]
     Active Substance: MELOXICAM
  13. DUTASTERIDE [Concomitant]
     Active Substance: DUTASTERIDE
  14. HYDROCHLOROTHIAZIDE [Concomitant]
     Active Substance: HYDROCHLOROTHIAZIDE
  15. AMBIEN [Concomitant]
     Active Substance: ZOLPIDEM TARTRATE
  16. TADALAFIL [Concomitant]
     Active Substance: TADALAFIL
  17. TADALAFIL [Concomitant]
     Active Substance: TADALAFIL
  18. PRAMIPEXOLE DIHYDROCHLORIDE [Concomitant]
     Active Substance: PRAMIPEXOLE DIHYDROCHLORIDE

REACTIONS (4)
  - Product dose omission issue [Recovered/Resolved]
  - Eye pain [Unknown]
  - Dry eye [Unknown]
  - Eye irritation [Unknown]

NARRATIVE: CASE EVENT DATE: 20231227
